FAERS Safety Report 6256913-1 (Version None)
Quarter: 2009Q3

REPORT INFORMATION
  Report Type: 
  Country: None (occurrence: None)
  Receive Date: 20090706
  Receipt Date: 20090625
  Transmission Date: 20100115
  Serious: Yes (Other)
  Sender: FDA-Public Use
  Company Number: PHHY2009BR25815

PATIENT
  Sex: Male
  Weight: 75 kg

DRUGS (2)
  1. DIOVAN TRIPLE [Suspect]
     Indication: HYPERTENSION
     Dosage: 160/12.5/5 MG/DAY
     Route: 048
     Dates: start: 20090615
  2. DIOVAN TRIPLE [Suspect]
     Dosage: 160/12.5/5 MG TWICE/DAY
     Route: 048
     Dates: start: 20090625

REACTIONS (1)
  - BLOOD PRESSURE INCREASED [None]
